FAERS Safety Report 22299087 (Version 1)
Quarter: 2023Q2

REPORT INFORMATION
  Report Type: Spontaneous
  Country: US (occurrence: US)
  Receive Date: 20230509
  Receipt Date: 20230509
  Transmission Date: 20230721
  Serious: Yes (Other)
  Sender: FDA-Public Use
  Company Number: US-PFIZER INC-PV202300081948

PATIENT
  Age: 72 Year
  Sex: Female

DRUGS (2)
  1. IBRANCE [Suspect]
     Active Substance: PALBOCICLIB
     Indication: Metastases to bone marrow
     Dosage: TAKE 1 TABLET (100 MG) BY MOUTH WITH FOOD ON DAYS 1 THROUGH 21 FOLLOWED BY 7 DAYS OFF THERAPY
     Route: 048
     Dates: start: 20200618
  2. OLANZAPINE [Concomitant]
     Active Substance: OLANZAPINE
     Dosage: UNK

REACTIONS (1)
  - Pneumonia [Unknown]
